FAERS Safety Report 16692092 (Version 7)
Quarter: 2021Q2

REPORT INFORMATION
  Report Type: Report from Study
  Country: GB (occurrence: GB)
  Receive Date: 20190812
  Receipt Date: 20210427
  Transmission Date: 20210716
  Serious: Yes (Hospitalization, Other)
  Sender: FDA-Public Use
  Company Number: GB-SA-2017SA176191

PATIENT
  Age: 35 Year
  Sex: Female
  Weight: 70.2 kg

DRUGS (2)
  1. ALEMTUZUMAB [Suspect]
     Active Substance: ALEMTUZUMAB
     Dosage: 12 MG, QD
     Route: 041
     Dates: start: 20160919, end: 20160923
  2. ALEMTUZUMAB [Suspect]
     Active Substance: ALEMTUZUMAB
     Indication: RELAPSING MULTIPLE SCLEROSIS
     Dosage: 12 MG,QD
     Route: 041
     Dates: start: 20170911, end: 20170913

REACTIONS (6)
  - Neutrophil count increased [Recovered/Resolved]
  - Dyspnoea [Recovered/Resolved]
  - Goitre [Not Recovered/Not Resolved]
  - Benign neoplasm of thyroid gland [Recovered/Resolved]
  - Autoimmune neutropenia [Not Recovered/Not Resolved]
  - Viral infection [Recovered/Resolved]

NARRATIVE: CASE EVENT DATE: 20170913
